FAERS Safety Report 17367801 (Version 1)
Quarter: 2020Q1

REPORT INFORMATION
  Report Type: Spontaneous
  Country: US (occurrence: US)
  Receive Date: 20200203
  Receipt Date: 20200203
  Transmission Date: 20200409
  Serious: Yes (Death)
  Sender: FDA-Public Use
  Company Number: None

PATIENT
  Age: 69 Year
  Sex: Male
  Weight: 79.2 kg

DRUGS (8)
  1. ZOCOR [Concomitant]
     Active Substance: SIMVASTATIN
  2. B12 FOLATE [Concomitant]
  3. MOTRIN [Concomitant]
     Active Substance: IBUPROFEN
  4. MEKTOVI [Suspect]
     Active Substance: BINIMETINIB
     Indication: MALIGNANT MELANOMA
     Route: 048
     Dates: start: 20190118, end: 20200202
  5. ASPIRIN. [Concomitant]
     Active Substance: ASPIRIN
  6. VIAGRA [Concomitant]
     Active Substance: SILDENAFIL CITRATE
  7. VITAMIN D [Concomitant]
     Active Substance: VITAMIN D NOS
  8. BRAFTOVI [Suspect]
     Active Substance: ENCORAFENIB
     Indication: MALIGNANT MELANOMA
     Route: 048
     Dates: start: 20190118, end: 20200202

REACTIONS (1)
  - Death [None]

NARRATIVE: CASE EVENT DATE: 20200202
